FAERS Safety Report 10417987 (Version 1)
Quarter: 2014Q3

REPORT INFORMATION
  Report Type: Spontaneous
  Country: US (occurrence: US)
  Receive Date: 20140829
  Receipt Date: 20140829
  Transmission Date: 20150326
  Serious: No
  Sender: FDA-Public Use
  Company Number: US-BAYER-2014-129561

PATIENT
  Age: 86 Year
  Sex: Male
  Weight: 90.7 kg

DRUGS (1)
  1. ALEVE [Suspect]
     Active Substance: NAPROXEN SODIUM
     Indication: FRACTURE PAIN
     Dosage: 2 DF, Q4HR
     Route: 048
     Dates: start: 20140826

REACTIONS (2)
  - Extra dose administered [Unknown]
  - Drug ineffective [Unknown]

NARRATIVE: CASE EVENT DATE: 20140826
